FAERS Safety Report 22588727 (Version 1)
Quarter: 2023Q2

REPORT INFORMATION
  Report Type: Spontaneous
  Country: US (occurrence: US)
  Receive Date: 20230612
  Receipt Date: 20230612
  Transmission Date: 20230722
  Serious: Yes (Other)
  Sender: FDA-Public Use
  Company Number: US-AUROBINDO-AUR-APL-2023-041390

PATIENT
  Sex: Male

DRUGS (1)
  1. DONEPEZIL HYDROCHLORIDE [Suspect]
     Active Substance: DONEPEZIL HYDROCHLORIDE
     Indication: Memory impairment
     Dosage: 5 MILLIGRAM, ONCE A DAY
     Route: 048

REACTIONS (6)
  - Psychotic disorder [Recovering/Resolving]
  - Aggression [Recovering/Resolving]
  - Crying [Recovering/Resolving]
  - Cerebrovascular accident [Recovering/Resolving]
  - Patient elopement [Recovering/Resolving]
  - Urinary tract infection [Recovering/Resolving]
